FAERS Safety Report 21123704 (Version 1)
Quarter: 2022Q3

REPORT INFORMATION
  Report Type: Other
  Country: None (occurrence: JP)
  Receive Date: 20220725
  Receipt Date: 20220725
  Transmission Date: 20221027
  Serious: Yes (Hospitalization)
  Sender: FDA-Public Use
  Company Number: JP-MLV Pharma LLC-2131176

PATIENT
  Age: 19 Year
  Sex: Female

DRUGS (2)
  1. BETAMETHASONE DIPROPIONATE [Suspect]
     Active Substance: BETAMETHASONE DIPROPIONATE
     Indication: Ichthyosis
     Route: 061
  2. HYDROCORTISONE [Suspect]
     Active Substance: HYDROCORTISONE

REACTIONS (5)
  - Staphylococcal bacteraemia [Unknown]
  - Pyelonephritis [Unknown]
  - Beta haemolytic streptococcal infection [Unknown]
  - Acinetobacter test positive [Unknown]
  - Vascular device infection [Unknown]
